FAERS Safety Report 10031787 (Version 1)
Quarter: 2014Q1

REPORT INFORMATION
  Report Type: Spontaneous
  Country: US (occurrence: US)
  Receive Date: 20140324
  Receipt Date: 20140324
  Transmission Date: 20141002
  Serious: No
  Sender: FDA-Public Use
  Company Number: US-009507513-1403USA002735

PATIENT
  Sex: Female
  Weight: 70.3 kg

DRUGS (6)
  1. OXYTROL FOR WOMEN [Suspect]
     Indication: HYPERTONIC BLADDER
     Dosage: UNK, UNKNOWN
     Route: 062
     Dates: start: 201310, end: 20140202
  2. OXYTROL FOR WOMEN [Suspect]
     Indication: MICTURITION URGENCY
  3. BENAZEPRIL HYDROCHLORIDE [Concomitant]
     Indication: HYPERTENSION
     Dosage: 40 MG, UNKNOWN
  4. ESTRACE [Concomitant]
     Indication: PRODUCT USED FOR UNKNOWN INDICATION
     Dosage: UNK, UNKNOWN
  5. ATELVIA [Concomitant]
     Indication: BONE DISORDER
     Dosage: UNK, UNKNOWN
  6. ALPRAZOLAM [Concomitant]
     Indication: ANXIETY
     Dosage: UNK, UNKNOWN

REACTIONS (3)
  - Pruritus [Recovered/Resolved]
  - Application site erythema [Recovered/Resolved]
  - Product adhesion issue [Unknown]
